FAERS Safety Report 6991934-2 (Version None)
Quarter: 2010Q3

REPORT INFORMATION
  Report Type: 
  Country: None (occurrence: None)
  Receive Date: 20100917
  Receipt Date: 20100907
  Transmission Date: 20110219
  Serious: Yes (Hospitalization)
  Sender: FDA-Public Use
  Company Number: PHHY2010JP52193

PATIENT
  Age: 85 Year
  Sex: Female

DRUGS (3)
  1. DIOVAN HCT [Suspect]
     Indication: HYPERTENSION
     Dosage: 1 DF, QD
     Route: 048
     Dates: start: 20100617
  2. ADALAT CC [Concomitant]
     Dosage: 40 MG, UNK
     Route: 048
  3. CRESTOR [Concomitant]
     Dosage: 2.5 MG, UNK
     Route: 048

REACTIONS (4)
  - DECREASED APPETITE [None]
  - HEAT ILLNESS [None]
  - HYPONATRAEMIA [None]
  - MUSCLE SPASMS [None]
